FAERS Safety Report 6245179-4 (Version None)
Quarter: 2009Q2

REPORT INFORMATION
  Report Type: 
  Country: None (occurrence: None)
  Receive Date: 20090625
  Receipt Date: 20090616
  Transmission Date: 20091009
  Serious: Yes (Hospitalization)
  Sender: FDA-Public Use
  Company Number: PHHO2009ES07472

PATIENT
  Sex: Male
  Weight: 84 kg

DRUGS (4)
  1. CERTICAN [Suspect]
     Indication: HEART TRANSPLANT
     Dosage: 0.75 MG, QD
     Route: 048
     Dates: start: 20070726
  2. NEORAL [Interacting]
     Indication: HEART TRANSPLANT
     Dosage: 75 MG, QD
     Route: 048
     Dates: start: 20070810
  3. LESCOL [Interacting]
     Indication: DYSLIPIDAEMIA
     Dosage: 80 MG, QD
     Route: 048
     Dates: start: 20070701
  4. COLCHIMAX [Interacting]
     Indication: GOUT
     Dosage: 1 TABLET QD
     Route: 048
     Dates: start: 19920801

REACTIONS (5)
  - DIARRHOEA [None]
  - DRUG INTERACTION [None]
  - MUSCULAR WEAKNESS [None]
  - RHABDOMYOLYSIS [None]
  - WEIGHT DECREASED [None]
